FAERS Safety Report 12047963 (Version 1)
Quarter: 2016Q1

REPORT INFORMATION
  Report Type: Spontaneous
  Country: US (occurrence: None)
  Receive Date: 20160208
  Receipt Date: 20160208
  Transmission Date: 20160526
  Serious: Yes (Hospitalization)
  Sender: FDA-Public Use
  Company Number: None

PATIENT
  Age: 21 Year
  Sex: Female
  Weight: 58.06 kg

DRUGS (1)
  1. MONISTAT 1 COMBINATION PACK [Suspect]
     Active Substance: MICONAZOLE NITRATE
     Indication: VULVOVAGINAL MYCOTIC INFECTION
     Dosage: 1, AT BEDTIME, VAGINAL
     Route: 067
     Dates: start: 20160202, end: 20160203

REACTIONS (10)
  - No therapeutic response [None]
  - Fungal infection [None]
  - Vulvovaginal burning sensation [None]
  - Vulvovaginal discomfort [None]
  - Emotional disorder [None]
  - Vulvovaginal pain [None]
  - Vulvovaginal swelling [None]
  - Pruritus [None]
  - Gait disturbance [None]
  - Vaginal haemorrhage [None]

NARRATIVE: CASE EVENT DATE: 20160203
